FAERS Safety Report 8260865-2 (Version None)
Quarter: 2012Q2

REPORT INFORMATION
  Report Type: 
  Country: None (occurrence: None)
  Receive Date: 20120402
  Receipt Date: 20120320
  Transmission Date: 20120825
  Serious: Yes (Other)
  Sender: FDA-Public Use
  Company Number: 2012-029820

PATIENT

DRUGS (3)
  1. XARELTO [Suspect]
     Indication: ORTHOPEDIC PROCEDURE
     Dosage: ,ORAL
     Route: 048
  2. ASPIRIN [Suspect]
  3. TORADOL [Concomitant]

REACTIONS (2)
  - WOUND SECRETION [None]
  - GASTROINTESTINAL HAEMORRHAGE [None]
